FAERS Safety Report 14861262 (Version 1)
Quarter: 2018Q2

REPORT INFORMATION
  Report Type: Spontaneous
  Country: US (occurrence: US)
  Receive Date: 20180508
  Receipt Date: 20180508
  Transmission Date: 20180711
  Serious: Yes (Death, Other)
  Sender: FDA-Public Use
  Company Number: US-JNJFOC-20180505211

PATIENT

DRUGS (1)
  1. XARELTO [Suspect]
     Active Substance: RIVAROXABAN
     Indication: PRODUCT USED FOR UNKNOWN INDICATION
     Route: 048
     Dates: start: 201511, end: 201609

REACTIONS (4)
  - Internal haemorrhage [Unknown]
  - Death [Fatal]
  - Haematoma [Unknown]
  - Impaired healing [Unknown]

NARRATIVE: CASE EVENT DATE: 20160902
